FAERS Safety Report 6461079-9 (Version None)
Quarter: 2009Q4

REPORT INFORMATION
  Report Type: 
  Country: None (occurrence: None)
  Receive Date: 20091130
  Receipt Date: 20091123
  Transmission Date: 20100525
  Serious: Yes (Hospitalization)
  Sender: FDA-Public Use
  Company Number: B0607013A

PATIENT
  Sex: Male

DRUGS (3)
  1. CLAMOXYL [Suspect]
     Indication: TOOTH ABSCESS
     Dosage: 1G SINGLE DOSE
     Route: 048
     Dates: start: 20090117, end: 20090117
  2. VALSARTAN AND HYDROCHLOROTHIAZIDE [Concomitant]
     Dosage: 160MG PER DAY
     Dates: start: 20070101
  3. TRUVADA [Concomitant]
     Dosage: 1TAB PER DAY
     Dates: start: 20081201

REACTIONS (9)
  - ANAPHYLACTIC SHOCK [None]
  - DYSPHAGIA [None]
  - DYSPNOEA [None]
  - FACE OEDEMA [None]
  - GENERALISED ERYTHEMA [None]
  - MALAISE [None]
  - PRURITUS [None]
  - PRURITUS GENERALISED [None]
  - TYPE I HYPERSENSITIVITY [None]
